FAERS Safety Report 5779336-8 (Version None)
Quarter: 2008Q2

REPORT INFORMATION
  Report Type: 
  Country: None (occurrence: None)
  Receive Date: 20080619
  Receipt Date: 20080128
  Transmission Date: 20081010
  Serious: No
  Sender: FDA-Public Use
  Company Number: US-BOEHRINGER INGELHEIM GMBH, GERMANY-2006-BP-07555PF

PATIENT
  Sex: Male

DRUGS (10)
  1. MIRAPEX [Suspect]
     Indication: PARKINSON'S DISEASE
     Route: 048
     Dates: start: 20020429
  2. REQUIP [Concomitant]
     Indication: PARKINSON'S DISEASE
     Dates: start: 20020101
  3. SINEMET [Concomitant]
     Indication: PARKINSON'S DISEASE
     Dates: start: 20020301
  4. COMTAN [Concomitant]
     Indication: PARKINSON'S DISEASE
     Dates: start: 20030801
  5. STALEVO 100 [Concomitant]
     Indication: PARKINSON'S DISEASE
     Dates: start: 20040401
  6. AMBIEN [Concomitant]
     Dates: start: 20040201
  7. LIPITOR [Concomitant]
     Indication: BLOOD CHOLESTEROL INCREASED
  8. FLOMAX [Concomitant]
     Dates: end: 20040101
  9. FLEXERIL [Concomitant]
  10. PAXIL [Concomitant]

REACTIONS (5)
  - ANXIETY [None]
  - DEPRESSION [None]
  - OBSESSIVE-COMPULSIVE DISORDER [None]
  - PATHOLOGICAL GAMBLING [None]
  - STOMACH DISCOMFORT [None]
